FAERS Safety Report 23711577 (Version 3)
Quarter: 2024Q3

REPORT INFORMATION
  Report Type: Report from Study
  Country: US (occurrence: US)
  Receive Date: 20240405
  Receipt Date: 20240716
  Transmission Date: 20241016
  Serious: Yes (Other)
  Sender: ACADIA PHARMACEUTICALS
  Company Number: US-ACADIA PHARMACEUTICALS INC.-ACA-2024-PIM-001507

PATIENT
  Sex: Female

DRUGS (5)
  1. NUPLAZID [Suspect]
     Active Substance: PIMAVANSERIN TARTRATE
     Indication: Parkinson^s disease psychosis
     Dosage: 34 MILLIGRAM, QD
     Route: 048
     Dates: start: 20240130
  2. CARBIDOPA\LEVODOPA [Suspect]
     Active Substance: CARBIDOPA\LEVODOPA
  3. DONEPEZIL [Concomitant]
     Active Substance: DONEPEZIL\DONEPEZIL HYDROCHLORIDE
  4. MIRTAZAPINE [Concomitant]
     Active Substance: MIRTAZAPINE
  5. LORAZEPAM [Concomitant]
     Active Substance: LORAZEPAM

REACTIONS (6)
  - Suicidal behaviour [Not Recovered/Not Resolved]
  - Tremor [Not Recovered/Not Resolved]
  - Personality change [Not Recovered/Not Resolved]
  - Mood altered [Recovered/Resolved]
  - Personality disorder [Unknown]
  - Adjustment disorder [Unknown]
